FAERS Safety Report 22392463 (Version 2)
Quarter: 2023Q2

REPORT INFORMATION
  Report Type: Report from Study
  Country: FR (occurrence: FR)
  Receive Date: 20230601
  Receipt Date: 20230609
  Transmission Date: 20230721
  Serious: Yes (Death, Other)
  Sender: FDA-Public Use
  Company Number: FR-PFIZER INC-PV202300092926

PATIENT

DRUGS (6)
  1. BEVACIZUMAB [Suspect]
     Active Substance: BEVACIZUMAB
     Indication: Renal cell carcinoma
     Dosage: 15 MG/KG, CYCLE (ON DAY 1 (DL)
     Route: 042
  2. BEVACIZUMAB [Suspect]
     Active Substance: BEVACIZUMAB
     Indication: Non-renal cell carcinoma of kidney
  3. CISPLATIN [Concomitant]
     Active Substance: CISPLATIN
     Indication: Renal cell carcinoma
     Dosage: 70 MG/M2, CYCLE (D1 OVER 2 H)
  4. CISPLATIN [Concomitant]
     Active Substance: CISPLATIN
     Indication: Non-renal cell carcinoma of kidney
  5. GEMCITABINE HYDROCHLORIDE [Concomitant]
     Active Substance: GEMCITABINE HYDROCHLORIDE
     Indication: Renal cell carcinoma
     Dosage: 1250 MG/M2, CYCLE (D1 AND D8 OVER 30 MIN)
     Route: 042
  6. GEMCITABINE HYDROCHLORIDE [Concomitant]
     Active Substance: GEMCITABINE HYDROCHLORIDE
     Indication: Non-renal cell carcinoma of kidney

REACTIONS (1)
  - Subdural haematoma [Fatal]
